FAERS Safety Report 17377893 (Version 1)
Quarter: 2020Q1

REPORT INFORMATION
  Report Type: Spontaneous
  Country: CH (occurrence: CH)
  Receive Date: 20200206
  Receipt Date: 20200206
  Transmission Date: 20200409
  Serious: Yes (Death, Hospitalization)
  Sender: FDA-Public Use
  Company Number: CH-JNJFOC-20200142142

PATIENT
  Age: 79 Year
  Sex: Male

DRUGS (4)
  1. CANDESARTAN. [Concomitant]
     Active Substance: CANDESARTAN
  2. RIVAROXABAN [Suspect]
     Active Substance: RIVAROXABAN
     Indication: ATRIAL FIBRILLATION
     Route: 048
  3. NEBIVOLOL. [Concomitant]
     Active Substance: NEBIVOLOL
  4. HYDROCHLOROTHIAZID [Concomitant]
     Active Substance: HYDROCHLOROTHIAZIDE

REACTIONS (20)
  - Acute right ventricular failure [Unknown]
  - Acute kidney injury [Unknown]
  - Cardiogenic shock [Unknown]
  - Death [Fatal]
  - Pneumatosis intestinalis [Unknown]
  - Multiple organ dysfunction syndrome [Recovering/Resolving]
  - Hypotension [Unknown]
  - Cardiac failure high output [Unknown]
  - Leukocytosis [Unknown]
  - Arteriovenous fistula [Unknown]
  - Pneumonia [Unknown]
  - Vascular pseudoaneurysm ruptured [Unknown]
  - Weight decreased [Unknown]
  - Gastrointestinal ischaemia [Unknown]
  - Gastric pneumatosis [Unknown]
  - Bradycardia [Unknown]
  - Vascular pseudoaneurysm [Unknown]
  - Pulmonary hypertension [Unknown]
  - Syncope [Unknown]
  - Septic shock [Unknown]
